FAERS Safety Report 21674144 (Version 1)
Quarter: 2022Q4

REPORT INFORMATION
  Report Type: Spontaneous
  Country: CN (occurrence: CN)
  Receive Date: 20221202
  Receipt Date: 20221202
  Transmission Date: 20230113
  Serious: Yes (Disabling)
  Sender: FDA-Public Use
  Company Number: CN-PFIZER INC-PV202200113827

PATIENT
  Age: 71 Year
  Sex: Male
  Weight: 48 kg

DRUGS (3)
  1. FLUCONAZOLE [Suspect]
     Active Substance: FLUCONAZOLE
     Indication: Prophylaxis
     Dosage: 200 MG, 1X/DAY
     Route: 048
     Dates: start: 20221113, end: 20221120
  2. METHYLPREDNISOLONE [Suspect]
     Active Substance: METHYLPREDNISOLONE
     Indication: Radiation pneumonitis
     Dosage: 20 MG, 1X/DAY
     Route: 048
     Dates: start: 20221105, end: 20221107
  3. METHYLPREDNISOLONE [Suspect]
     Active Substance: METHYLPREDNISOLONE
     Dosage: 12 MG, 1X/DAY
     Route: 048
     Dates: start: 20221108, end: 20221117

REACTIONS (1)
  - Hepatic function abnormal [Recovering/Resolving]

NARRATIVE: CASE EVENT DATE: 20221114
